FAERS Safety Report 5503192-6 (Version None)
Quarter: 2007Q4

REPORT INFORMATION
  Report Type: 
  Country: None (occurrence: None)
  Receive Date: 20071031
  Receipt Date: 20071020
  Transmission Date: 20080405
  Serious: Yes (Hospitalization)
  Sender: FDA-Public Use
  Company Number: US-AMGEN-QUU247897

PATIENT
  Sex: Female

DRUGS (9)
  1. ENBREL [Suspect]
     Indication: RHEUMATOID ARTHRITIS
     Route: 058
     Dates: start: 20070208, end: 20071014
  2. METHOTREXATE [Concomitant]
     Route: 048
     Dates: start: 20070208
  3. MINOCYCLINE HCL [Concomitant]
     Dates: start: 20071001
  4. VALTREX [Concomitant]
     Dates: start: 20050210
  5. MOBIC [Concomitant]
     Dates: start: 20050210
  6. PREDNISONE [Concomitant]
     Dates: start: 20061001
  7. PREVACID [Concomitant]
     Dates: start: 20071001
  8. LASIX [Concomitant]
     Dates: start: 20070628
  9. CLIMARA [Concomitant]
     Dates: start: 20050210

REACTIONS (3)
  - INCONTINENCE [None]
  - MULTIPLE SCLEROSIS [None]
  - PARAESTHESIA [None]
